FAERS Safety Report 9816040 (Version 1)
Quarter: 2014Q1

REPORT INFORMATION
  Report Type: Spontaneous
  Country: US (occurrence: US)
  Receive Date: 20140114
  Receipt Date: 20140114
  Transmission Date: 20141002
  Serious: Yes (Death)
  Sender: FDA-Public Use
  Company Number: US-PFIZER INC-2014006725

PATIENT
  Age: 44 Year
  Sex: Female

DRUGS (3)
  1. FENTANYL [Suspect]
  2. VENLAFAXINE HCL [Suspect]
  3. DIPHENHYDRAMINE [Suspect]

REACTIONS (3)
  - Intentional drug misuse [Fatal]
  - Cardiac arrest [Fatal]
  - Respiratory arrest [Fatal]
